FAERS Safety Report 6234873-7 (Version None)
Quarter: 2009Q2

REPORT INFORMATION
  Report Type: 
  Country: None (occurrence: None)
  Receive Date: 20090618
  Receipt Date: 20090610
  Transmission Date: 20091009
  Serious: Yes (Other)
  Sender: FDA-Public Use
  Company Number: FR-AVENTIS-200912174FR

PATIENT
  Sex: Male

DRUGS (3)
  1. TAXOTERE [Suspect]
     Dosage: DOSE UNIT: 009
     Route: 042
  2. CISPLATIN [Concomitant]
  3. FLUOROURACIL [Concomitant]
     Route: 042

REACTIONS (1)
  - HAEMORRHAGIC TUMOUR NECROSIS [None]
